FAERS Safety Report 20182483 (Version 1)
Quarter: 2021Q4

REPORT INFORMATION
  Report Type: Spontaneous
  Country: US (occurrence: None)
  Receive Date: 20211214
  Receipt Date: 20211214
  Transmission Date: 20220303
  Serious: No
  Sender: FDA-Public Use
  Company Number: None

PATIENT
  Age: 56 Year
  Sex: Female
  Weight: 79.5 kg

DRUGS (1)
  1. REGEN-COV [Suspect]
     Active Substance: CASIRIVIMAB\IMDEVIMAB
     Indication: COVID-19 treatment
     Dosage: OTHER FREQUENCY : ONCE;?
     Route: 042
     Dates: start: 20211115, end: 20211115

REACTIONS (2)
  - Back pain [None]
  - Infusion related reaction [None]

NARRATIVE: CASE EVENT DATE: 20211115
